FAERS Safety Report 5960846-5 (Version None)
Quarter: 2008Q4

REPORT INFORMATION
  Report Type: 
  Country: None (occurrence: None)
  Receive Date: 20081114
  Receipt Date: 20080724
  Transmission Date: 20090506
  Serious: No
  Sender: FDA-Public Use
  Company Number: PHEH2008US05715

PATIENT
  Age: 82 Year
  Sex: Female

DRUGS (9)
  1. TEKTURNA HCT [Suspect]
     Indication: HYPERTENSION
     Dosage: 150 MG, QD, ORAL
     Route: 048
     Dates: start: 20080519, end: 20080524
  2. TOPROXL XL (METOPROLOL SUCCINATE) [Concomitant]
  3. TRIAMTERENE AND HYDROCHLORITHIAZIDE ^HARRIS^ (HYDROCHLOROTHIAZIDE, TRI [Concomitant]
  4. METFORMIN HCL [Concomitant]
  5. ASPIRIN [Concomitant]
  6. DIAZEPAM [Concomitant]
  7. LIPITOR /NET/ (ATORVASTATIN CALCIUM) [Concomitant]
  8. FOSAMAX [Concomitant]
  9. MIDRIN (DICHLORALPHENAZONE, ISOMETHEPTENE, PARACETAMOL) [Concomitant]

REACTIONS (2)
  - HYPOAESTHESIA [None]
  - HYPOAESTHESIA FACIAL [None]
